FAERS Safety Report 24539859 (Version 1)
Quarter: 2024Q4

REPORT INFORMATION
  Report Type: Spontaneous
  Country: HU (occurrence: HU)
  Receive Date: 20241023
  Receipt Date: 20241023
  Transmission Date: 20250114
  Serious: Yes (Other)
  Sender: SANDOZ
  Company Number: HU-002147023-PHHY2019HU086087

PATIENT
  Age: 42 Year
  Sex: Female

DRUGS (11)
  1. FLUOROURACIL [Suspect]
     Active Substance: FLUOROURACIL
     Indication: Product used for unknown indication
     Dosage: UNK
     Route: 065
     Dates: start: 2007, end: 2007
  2. CYCLOPHOSPHAMIDE [Suspect]
     Active Substance: CYCLOPHOSPHAMIDE
     Indication: Product used for unknown indication
     Dosage: UNK
     Route: 065
     Dates: start: 2007, end: 2007
  3. EPIRUBICIN [Suspect]
     Active Substance: EPIRUBICIN
     Indication: Product used for unknown indication
     Dosage: UNK
     Route: 065
     Dates: start: 2007, end: 2007
  4. EVEROLIMUS [Suspect]
     Active Substance: EVEROLIMUS
     Indication: Palliative care
     Dosage: 10 MG, OT
     Route: 065
     Dates: start: 201809
  5. FULVESTRANT [Suspect]
     Active Substance: FULVESTRANT
     Indication: Palliative care
     Dosage: UNK
     Route: 065
     Dates: start: 201703, end: 201809
  6. LETROZOLE [Suspect]
     Active Substance: LETROZOLE
     Indication: Invasive ductal breast carcinoma
     Dosage: UNK
     Route: 065
     Dates: start: 20140210, end: 20170207
  7. EXEMESTANE [Concomitant]
     Active Substance: EXEMESTANE
     Indication: Palliative care
     Dosage: 25 MG, UNK
     Route: 065
     Dates: start: 201809
  8. LEUPROLIDE ACETATE [Concomitant]
     Active Substance: LEUPROLIDE ACETATE
     Indication: Invasive ductal breast carcinoma
     Dosage: UNK
     Route: 065
     Dates: start: 201112, end: 20170207
  9. PALBOCICLIB [Concomitant]
     Active Substance: PALBOCICLIB
     Indication: Palliative care
     Dosage: UNK
     Route: 065
     Dates: start: 201703, end: 201808
  10. PALBOCICLIB [Concomitant]
     Active Substance: PALBOCICLIB
     Dosage: UNK
     Route: 065
     Dates: start: 201808, end: 201809
  11. TAMOXIFEN [Concomitant]
     Active Substance: TAMOXIFEN
     Indication: Invasive ductal breast carcinoma
     Dosage: UNK
     Route: 065
     Dates: start: 201112, end: 201311

REACTIONS (7)
  - Neutropenia [Recovered/Resolved]
  - Breast cancer recurrent [Unknown]
  - Metastases to lymph nodes [Unknown]
  - Metastases to bone [Unknown]
  - Metastases to pleura [Unknown]
  - Cough [Recovered/Resolved]
  - Dyspnoea [Recovered/Resolved]

NARRATIVE: CASE EVENT DATE: 20180101
